FAERS Safety Report 5930746-5 (Version None)
Quarter: 2008Q4

REPORT INFORMATION
  Report Type: 
  Country: None (occurrence: None)
  Receive Date: 20081022
  Receipt Date: 20081010
  Transmission Date: 20090506
  Serious: Yes (Hospitalization)
  Sender: FDA-Public Use
  Company Number: GXKR2008CH09728

PATIENT
  Age: 50 Year
  Sex: Female

DRUGS (4)
  1. DEXAMETHASONE [Suspect]
     Indication: EVANS SYNDROME
     Dosage: 40 MG, ORAL
     Route: 048
  2. DEXAMETHASONE [Suspect]
     Indication: EVANS SYNDROME
     Dosage: 40 MG, ORAL
     Route: 048
  3. TRANEXAMIC ACID (NGX) (TRANEXAMIC ACID) UNKNOWN [Suspect]
     Indication: EVANS SYNDROME
     Dosage: 0.5 G, TID, ORAL
     Route: 048
  4. IMMUNE GLOBULIN (HUMAN) [Concomitant]

REACTIONS (9)
  - ABDOMINAL PAIN [None]
  - DRUG INEFFECTIVE [None]
  - DRUG INTERACTION [None]
  - HAEMORRHAGIC DIATHESIS [None]
  - MESENTERIC VEIN THROMBOSIS [None]
  - MOUTH HAEMORRHAGE [None]
  - PLATELET COUNT DECREASED [None]
  - PORTAL VEIN THROMBOSIS [None]
  - VENOUS THROMBOSIS [None]
